FAERS Safety Report 6234880-4 (Version None)
Quarter: 2009Q2

REPORT INFORMATION
  Report Type: 
  Country: None (occurrence: None)
  Receive Date: 20090618
  Receipt Date: 20090611
  Transmission Date: 20091009
  Serious: Yes (Other)
  Sender: FDA-Public Use
  Company Number: US-ASTRAZENECA-2009UW09130

PATIENT
  Age: 53 Year
  Sex: Female
  Weight: 104.3 kg

DRUGS (9)
  1. CRESTOR [Suspect]
     Indication: HYPERLIPIDAEMIA
     Route: 048
     Dates: start: 20081117, end: 20090313
  2. ALBUTEROL [Concomitant]
     Indication: ASTHMA
     Dosage: TWO PUFFS
     Route: 048
     Dates: start: 20080926
  3. GEODON [Concomitant]
     Indication: BIPOLAR DISORDER
     Route: 048
     Dates: start: 20080704
  4. GEODON [Concomitant]
     Dosage: WITH FOOD
     Route: 048
     Dates: start: 20071107
  5. PROZAC [Concomitant]
     Indication: DEPRESSION
     Route: 048
     Dates: start: 20080709
  6. TOPAMAX [Concomitant]
     Route: 048
     Dates: start: 20071107
  7. LYRICA [Concomitant]
     Dosage: IN THE MORNING
     Route: 065
     Dates: start: 20071107
  8. LYRICA [Concomitant]
     Dosage: IN THE AFTERNOON
     Route: 065
     Dates: start: 20071107
  9. MOBIC [Concomitant]
     Route: 048
     Dates: start: 20080806

REACTIONS (1)
  - DYSPNOEA [None]
